FAERS Safety Report 7531696-3 (Version None)
Quarter: 2011Q2

REPORT INFORMATION
  Report Type: 
  Country: None (occurrence: None)
  Receive Date: 20110608
  Receipt Date: 20110601
  Transmission Date: 20111010
  Serious: Yes (Hospitalization)
  Sender: FDA-Public Use
  Company Number: US-PFIZER INC-2011120613

PATIENT
  Sex: Male

DRUGS (2)
  1. LIPITOR [Suspect]
     Dosage: UNK
  2. PLAVIX [Suspect]
     Dosage: UNK

REACTIONS (6)
  - PRURITUS [None]
  - RASH [None]
  - ABDOMINAL PAIN UPPER [None]
  - THROAT TIGHTNESS [None]
  - SWELLING [None]
  - LIP SWELLING [None]
